FAERS Safety Report 21946372 (Version 1)
Quarter: 2023Q1

REPORT INFORMATION
  Report Type: Spontaneous
  Country: US (occurrence: None)
  Receive Date: 20230202
  Receipt Date: 20230202
  Transmission Date: 20230417
  Serious: Yes (Hospitalization, Disabling)
  Sender: FDA-Public Use
  Company Number: None

PATIENT
  Age: 64 Year
  Sex: Female

DRUGS (3)
  1. RETEVMO [Suspect]
     Active Substance: SELPERCATINIB
     Indication: Metastases to central nervous system
     Dosage: FREQUENCY : TWICE A DAY;?
     Route: 048
     Dates: start: 20221205
  2. DOCETAXEL [Concomitant]
     Active Substance: DOCETAXEL
  3. RAMUCIRUMAB [Concomitant]
     Active Substance: RAMUCIRUMAB

REACTIONS (4)
  - Hypoaesthesia [None]
  - Meningioma [None]
  - Central nervous system necrosis [None]
  - Seizure [None]

NARRATIVE: CASE EVENT DATE: 20230128
